FAERS Safety Report 8383224-0 (Version None)
Quarter: 2012Q2

REPORT INFORMATION
  Report Type: 
  Country: None (occurrence: None)
  Receive Date: 20120522
  Receipt Date: 20120510
  Transmission Date: 20120825
  Serious: Yes (Other)
  Sender: FDA-Public Use
  Company Number: GGEL20120400463

PATIENT
  Age: 37 Year
  Sex: Female

DRUGS (4)
  1. BUPROPION HCL (BUPROPION) [Concomitant]
  2. METHYLPHENIDATE [Concomitant]
  3. STRATTERA [Concomitant]
  4. NORGESTIMATE AND ETHINYL ESTRADIOL [Suspect]
     Indication: CONTRACEPTION
     Dosage: 0.18/0.35 MG, ONCE A DAY, ORAL
     Route: 048
     Dates: end: 20120221

REACTIONS (2)
  - DRUG INEFFECTIVE [None]
  - PREGNANCY ON ORAL CONTRACEPTIVE [None]
